FAERS Safety Report 4788302-0 (Version None)
Quarter: 2005Q4

REPORT INFORMATION
  Report Type: 
  Country: None (occurrence: None)
  Receive Date: 20051005
  Receipt Date: 20050923
  Transmission Date: 20060501
  Serious: Yes (Disabling, Other)
  Sender: FDA-Public Use
  Company Number: 2005AC01546

PATIENT
  Age: 20292 Day
  Sex: Male
  Weight: 82 kg

DRUGS (3)
  1. CRESTOR [Suspect]
     Indication: HYPERCHOLESTEROLAEMIA
     Route: 048
     Dates: start: 20050110, end: 20050801
  2. BUFLOMEDIL 600 [Concomitant]
     Indication: INTERMITTENT CLAUDICATION
     Route: 048
     Dates: start: 20010101
  3. ASAFLOW [Concomitant]
     Route: 048
     Dates: start: 20010101

REACTIONS (1)
  - VISUAL DISTURBANCE [None]
